FAERS Safety Report 16731920 (Version 1)
Quarter: 2019Q3

REPORT INFORMATION
  Report Type: Spontaneous
  Country: DE (occurrence: DE)
  Receive Date: 20190822
  Receipt Date: 20190822
  Transmission Date: 20191005
  Serious: Yes (Other)
  Sender: FDA-Public Use
  Company Number: DE-ALLERGAN-1934207US

PATIENT
  Sex: Female
  Weight: 4 kg

DRUGS (2)
  1. MIRTAZAPIN [Suspect]
     Active Substance: MIRTAZAPINE
     Indication: MATERNAL EXPOSURE TIMING UNSPECIFIED
     Dosage: 22.5 MG, QD
     Route: 064
     Dates: start: 20180802, end: 20190509
  2. CITALOPRAM HYDROBROMIDE - BP [Suspect]
     Active Substance: CITALOPRAM HYDROBROMIDE
     Indication: MATERNAL EXPOSURE TIMING UNSPECIFIED
     Dosage: 10 MG, QD
     Route: 064
     Dates: start: 20180802, end: 20190509

REACTIONS (4)
  - Foetal exposure during pregnancy [Unknown]
  - Infantile apnoea [Recovered/Resolved]
  - Respiratory disorder neonatal [Recovered/Resolved]
  - Bradycardia neonatal [Recovered/Resolved]

NARRATIVE: CASE EVENT DATE: 20190509
